FAERS Safety Report 23345410 (Version 1)
Quarter: 2023Q4

REPORT INFORMATION
  Report Type: Spontaneous
  Country: US (occurrence: US)
  Receive Date: 20231228
  Receipt Date: 20231228
  Transmission Date: 20240110
  Serious: No
  Sender: FDA-Public Use
  Company Number: US-BRISTOL-MYERS SQUIBB COMPANY-2023-163098

PATIENT

DRUGS (1)
  1. LENALIDOMIDE [Suspect]
     Active Substance: LENALIDOMIDE
     Indication: Product used for unknown indication
     Dosage: 10 MILLIGRAM, QD FOR 21 DAYS ON THEN 7 DAYS OFF
     Route: 065

REACTIONS (4)
  - Intentional dose omission [Unknown]
  - Illness [Unknown]
  - Nausea [Unknown]
  - Fatigue [Unknown]
